FAERS Safety Report 9070955 (Version 1)
Quarter: 2013Q1

REPORT INFORMATION
  Report Type: Spontaneous
  Country: None (occurrence: US)
  Receive Date: 20130206
  Receipt Date: 20130206
  Transmission Date: 20140127
  Serious: No
  Sender: FDA-Public Use
  Company Number: US-ALLERGAN-1207361US

PATIENT
  Sex: Female

DRUGS (2)
  1. RESTASIS? [Suspect]
     Indication: PRODUCT USED FOR UNKNOWN INDICATION
     Dosage: 2 GTT, UNK
     Route: 047
     Dates: start: 201008, end: 201108
  2. LUBRICATING EYEDROPS [Concomitant]
     Indication: PRODUCT USED FOR UNKNOWN INDICATION
     Dosage: UNK
     Dates: start: 201008

REACTIONS (9)
  - Erythema [Recovering/Resolving]
  - Hypoaesthesia [Recovering/Resolving]
  - Paraesthesia [Recovering/Resolving]
  - Eyelid oedema [Recovering/Resolving]
  - Ocular hyperaemia [Recovering/Resolving]
  - Foreign body sensation in eyes [Recovering/Resolving]
  - Eye irritation [Recovering/Resolving]
  - Eye pain [Recovering/Resolving]
  - Ocular hyperaemia [Recovering/Resolving]
